FAERS Safety Report 4587468-5 (Version None)
Quarter: 2005Q1

REPORT INFORMATION
  Report Type: 
  Country: None (occurrence: None)
  Receive Date: 20050215
  Receipt Date: 20050201
  Transmission Date: 20050727
  Serious: Yes (Other)
  Sender: FDA-Public Use
  Company Number: DE-SHR-03-007131

PATIENT
  Age: 43 Year
  Sex: Female
  Weight: 93 kg

DRUGS (1)
  1. MIRENA [Suspect]
     Indication: CONTRACEPTION
     Dosage: 20 UG, CONT, INTRA-UTERINE
     Route: 015
     Dates: start: 19980601, end: 20030601

REACTIONS (3)
  - ANDROGENS INCREASED [None]
  - CONDITION AGGRAVATED [None]
  - MYASTHENIA GRAVIS [None]
